FAERS Safety Report 7422693-7 (Version None)
Quarter: 2011Q2

REPORT INFORMATION
  Report Type: 
  Country: None (occurrence: None)
  Receive Date: 20110419
  Receipt Date: 20110407
  Transmission Date: 20111010
  Serious: Yes (Other)
  Sender: FDA-Public Use
  Company Number: US-ELI_LILLY_AND_COMPANY-US201104002301

PATIENT
  Age: 82 Year
  Sex: Female

DRUGS (8)
  1. DIURETICS [Concomitant]
  2. CYMBALTA [Suspect]
     Dosage: 60 MG, QD
  3. ZETIA [Concomitant]
  4. CYMBALTA [Suspect]
     Indication: DEPRESSION
     Dosage: 60 MG, QD
     Dates: start: 20060101, end: 20100101
  5. PLAVIX [Concomitant]
  6. QUINAPRIL [Concomitant]
  7. LIPITOR [Concomitant]
  8. ATIVAN [Concomitant]
     Indication: ANXIETY

REACTIONS (6)
  - INTENTIONAL DRUG MISUSE [None]
  - JOINT SWELLING [None]
  - DYSPNOEA [None]
  - PRURITUS [None]
  - RIB FRACTURE [None]
  - MACULAR DEGENERATION [None]
